FAERS Safety Report 15934925 (Version 1)
Quarter: 2019Q1

REPORT INFORMATION
  Report Type: Spontaneous
  Country: None (occurrence: US)
  Receive Date: 20190207
  Receipt Date: 20190207
  Transmission Date: 20190417
  Serious: No
  Sender: FDA-Public Use
  Company Number: US-NEXGEN PHARMA, INC.-2062320

PATIENT
  Sex: Female

DRUGS (1)
  1. BUTALBITAL AND ACETAMINOPHEN TABLET [Suspect]
     Active Substance: ACETAMINOPHEN\BUTALBITAL
     Route: 048

REACTIONS (1)
  - Headache [Unknown]
